FAERS Safety Report 9394523 (Version 1)
Quarter: 2013Q3

REPORT INFORMATION
  Report Type: Report from Study
  Country: MX (occurrence: MX)
  Receive Date: 20130711
  Receipt Date: 20130711
  Transmission Date: 20140515
  Serious: Yes (Other)
  Sender: FDA-Public Use
  Company Number: PHHY2013MX073135

PATIENT
  Age: 53 Year
  Sex: Female

DRUGS (5)
  1. ACLASTA [Suspect]
     Indication: OSTEOPOROSIS
     Dosage: 5 MG/100ML, ANNUALLY
     Route: 042
  2. METFORMIN HYDROCHLORIDE [Concomitant]
     Indication: DIABETES MELLITUS
     Dosage: 2 DF, DAILY
     Dates: start: 201206
  3. ASPIRIN PROTECT [Concomitant]
     Dosage: 1 DF, DAILY
  4. ADIMOD [Concomitant]
     Indication: RESPIRATORY DISORDER
     Dosage: 1 DF, DAILY
  5. SODIUM CHLORIDE [Concomitant]
     Indication: RESPIRATORY DISORDER
     Dosage: 1 DF, DAILY

REACTIONS (1)
  - Diabetes mellitus [Not Recovered/Not Resolved]
